FAERS Safety Report 4749164-0 (Version None)
Quarter: 2005Q3

REPORT INFORMATION
  Report Type: 
  Country: None (occurrence: None)
  Receive Date: 20050817
  Receipt Date: 20050810
  Transmission Date: 20060218
  Serious: Yes (Disabling)
  Sender: FDA-Public Use
  Company Number: 2005-131389-NL

PATIENT
  Age: 29 Year
  Sex: Male

DRUGS (8)
  1. MIRTAZAPINE [Suspect]
     Indication: DEPRESSION
     Dosage: 45 MG ORAL
     Route: 048
     Dates: start: 20050708
  2. MIRTAZAPINE [Suspect]
     Indication: SOMNOLENCE
     Dosage: 45 MG ORAL
     Route: 048
     Dates: start: 20050708
  3. BUDESONIDE [Concomitant]
  4. DISULFIRAM [Concomitant]
  5. RISPERIDONE [Concomitant]
  6. PANTOPRAZOLE SODIUM [Concomitant]
  7. LITHIUM [Concomitant]
  8. OLANZAPINE [Concomitant]

REACTIONS (4)
  - DYSKINESIA OESOPHAGEAL [None]
  - DYSPHAGIA [None]
  - EATING DISORDER [None]
  - WEIGHT DECREASED [None]
